FAERS Safety Report 10933979 (Version 2)
Quarter: 2015Q1

REPORT INFORMATION
  Report Type: Spontaneous
  Country: PL (occurrence: PL)
  Receive Date: 20150320
  Receipt Date: 20150325
  Transmission Date: 20150721
  Serious: Yes (Other)
  Sender: FDA-Public Use
  Company Number: PHHY2015PL028664

PATIENT
  Age: 65 Year
  Sex: Female
  Weight: 64 kg

DRUGS (4)
  1. 5 FLUORO URACIL [Suspect]
     Active Substance: FLUOROURACIL
     Indication: RECTAL CANCER
     Dosage: 640 OT, UNK
     Route: 040
     Dates: start: 20140526, end: 20140729
  2. CALCIUM FOLINATE [Suspect]
     Active Substance: LEUCOVORIN CALCIUM
     Indication: RECTAL CANCER
     Dosage: 320 OT, UNK
     Route: 042
     Dates: start: 20140526, end: 20140729
  3. 5 FLUORO URACIL [Suspect]
     Active Substance: FLUOROURACIL
     Dosage: 960 OT, UNK
     Route: 041
     Dates: start: 20140526, end: 20140729
  4. IRINOTECAN [Suspect]
     Active Substance: IRINOTECAN
     Indication: RECTAL CANCER
     Dosage: 288 UNK, UNK
     Route: 065
     Dates: start: 20140526, end: 20140729

REACTIONS (2)
  - Neutropenia [Recovering/Resolving]
  - Agranulocytosis [Recovering/Resolving]

NARRATIVE: CASE EVENT DATE: 20140818
